FAERS Safety Report 9197165 (Version 2)
Quarter: 2013Q2

REPORT INFORMATION
  Report Type: Spontaneous
  Country: US (occurrence: US)
  Receive Date: 20130328
  Receipt Date: 20130503
  Transmission Date: 20140414
  Serious: No
  Sender: FDA-Public Use
  Company Number: US-ASTRAZENECA-2013SE17332

PATIENT
  Age: 67 Year
  Sex: Female
  Weight: 111.1 kg

DRUGS (2)
  1. SYMBICORT [Suspect]
     Indication: ASTHMA
     Dosage: 160/4.5, ONE PUFF, TWO TIMES A DAY
     Route: 055
     Dates: start: 20120102
  2. PRO AIR [Concomitant]

REACTIONS (4)
  - Dyspnoea [Unknown]
  - Wheezing [Unknown]
  - Drug intolerance [Unknown]
  - Off label use [Unknown]
